FAERS Safety Report 18793281 (Version 1)
Quarter: 2021Q1

REPORT INFORMATION
  Report Type: Spontaneous
  Country: US (occurrence: US)
  Receive Date: 20210126
  Receipt Date: 20210126
  Transmission Date: 20210419
  Serious: No
  Sender: FDA-Public Use
  Company Number: None

PATIENT
  Age: 61 Year
  Sex: Female

DRUGS (19)
  1. CHLOR?TRIMETON [Concomitant]
     Active Substance: CHLORPHENIRAMINE MALEATE
  2. MORPHINE SULFATE ER [Concomitant]
     Active Substance: MORPHINE SULFATE
  3. ZOFRAN [Concomitant]
     Active Substance: ONDANSETRON HYDROCHLORIDE
  4. CAPECITABINE 500 MG TABLET [Suspect]
     Active Substance: CAPECITABINE
     Route: 048
  5. ZANTAC 75 [Concomitant]
     Active Substance: RANITIDINE HYDROCHLORIDE
  6. ROSUVASTATIN CALCIUM. [Concomitant]
     Active Substance: ROSUVASTATIN CALCIUM
  7. CARVEDILOL. [Concomitant]
     Active Substance: CARVEDILOL
  8. IBUPROFEN. [Concomitant]
     Active Substance: IBUPROFEN
  9. HYDROXYZINE HCL [Concomitant]
     Active Substance: HYDROXYZINE HYDROCHLORIDE
  10. RITALIN [Concomitant]
     Active Substance: METHYLPHENIDATE HYDROCHLORIDE
  11. ZYRTEC [Concomitant]
     Active Substance: CETIRIZINE HYDROCHLORIDE
  12. ELIQUIS [Concomitant]
     Active Substance: APIXABAN
  13. XGEVA [Concomitant]
     Active Substance: DENOSUMAB
  14. ASPIRIN 81 [Concomitant]
     Active Substance: ASPIRIN
  15. DULCOLAX NOS [Concomitant]
     Active Substance: BISACODYL OR DOCUSATE SODIUM
  16. PROCHLORPERAZINE MALEATE. [Concomitant]
     Active Substance: PROCHLORPERAZINE MALEATE
  17. CALCIUM 600+D [Concomitant]
     Active Substance: CALCIUM\VITAMIN D
  18. FLOVENT HFA [Concomitant]
     Active Substance: FLUTICASONE PROPIONATE
  19. POTASSIUM CHLORIDE ER [Concomitant]
     Active Substance: POTASSIUM CHLORIDE

REACTIONS (1)
  - Disease progression [None]

NARRATIVE: CASE EVENT DATE: 20210126
